FAERS Safety Report 22538588 (Version 1)
Quarter: 2023Q2

REPORT INFORMATION
  Report Type: Spontaneous
  Country: CN (occurrence: CN)
  Receive Date: 20230609
  Receipt Date: 20230609
  Transmission Date: 20230722
  Serious: Yes (Hospitalization)
  Sender: FDA-Public Use
  Company Number: CN-NOVOPROD-1074433

PATIENT
  Age: 31 Year
  Sex: Female

DRUGS (1)
  1. INSULIN ASPART [Suspect]
     Active Substance: INSULIN ASPART
     Indication: Type 1 diabetes mellitus
     Dosage: 32, 15, AND 16 BEFORE EACH OF THREE MEALS PER DAY(UNIT WAS NOT REPORTED)

REACTIONS (2)
  - Breech presentation [Unknown]
  - Maternal exposure during pregnancy [Recovered/Resolved]
